FAERS Safety Report 4300015-8 (Version None)
Quarter: 2004Q1

REPORT INFORMATION
  Report Type: 
  Country: None (occurrence: None)
  Receive Date: 20040218
  Receipt Date: 20040203
  Transmission Date: 20041129
  Serious: Yes (Hospitalization, Other)
  Sender: FDA-Public Use
  Company Number: 200400727

PATIENT
  Age: 61 Year
  Sex: Female

DRUGS (1)
  1. LUMIGAN [Suspect]
     Indication: GLAUCOMA
     Dosage: 1 DROP DAILY EYE
     Dates: start: 20020801, end: 20020930

REACTIONS (2)
  - ANGLE CLOSURE GLAUCOMA [None]
  - CONDITION AGGRAVATED [None]
